FAERS Safety Report 8747654 (Version 2)
Quarter: 2012Q4

REPORT INFORMATION
  Report Type: 
  Country: US (occurrence: US)
  Receive Date: 20120827
  Receipt Date: 20120831
  Transmission Date: 20130627
  Serious: Yes (Hospitalization)
  Sender: FDA-Public Use
  Company Number: US-009507513-1208USA008083

PATIENT

DRUGS (3)
  1. VICTRELIS [Suspect]
     Dosage: 200 mg, tid
     Route: 048
     Dates: start: 201112, end: 20120529
  2. PEGASYS [Concomitant]
     Indication: HEPATITIS C
  3. RIBAVIRIN [Concomitant]
     Indication: HEPATITIS C

REACTIONS (14)
  - Hypersensitivity [Not Recovered/Not Resolved]
  - Anaphylactic reaction [Not Recovered/Not Resolved]
  - Neutropenia [Not Recovered/Not Resolved]
  - Kidney infection [Not Recovered/Not Resolved]
  - Alopecia [Unknown]
  - Drug ineffective [Unknown]
  - Urinary tract infection [Unknown]
  - Cystitis [Unknown]
  - Dehydration [Unknown]
  - Dizziness [Unknown]
  - Pyuria [Unknown]
  - Refusal of treatment by patient [Unknown]
  - Pyelonephritis [Recovered/Resolved]
  - Immunosuppression [Unknown]
